FAERS Safety Report 25656203 (Version 1)
Quarter: 2025Q3

REPORT INFORMATION
  Report Type: Report from Study
  Country: US (occurrence: US)
  Receive Date: 20250807
  Receipt Date: 20250807
  Transmission Date: 20251021
  Serious: Yes (Hospitalization)
  Sender: BAUSCH AND LOMB
  Company Number: US-BAUSCHBL-2025BNL013579

PATIENT
  Age: 50 Year
  Sex: Female

DRUGS (1)
  1. MIEBO [Suspect]
     Active Substance: PERFLUOROHEXYLOCTANE
     Indication: Dry eye
     Dosage: INSTILL 1 DROP INTO EACH EYE 4 TIMES DAILY. MUST SEE PACKAGE INSERT FOR ADMIN INSTRUCTIONS
     Route: 047
     Dates: start: 20250401, end: 20250701

REACTIONS (3)
  - Discomfort [Recovered/Resolved]
  - Hypersensitivity [Recovered/Resolved]
  - Eye pain [Recovered/Resolved]

NARRATIVE: CASE EVENT DATE: 20250101
